FAERS Safety Report 4615978-0 (Version None)
Quarter: 2005Q1

REPORT INFORMATION
  Report Type: 
  Country: None (occurrence: None)
  Receive Date: 20050318
  Receipt Date: 20050310
  Transmission Date: 20050727
  Serious: Yes (Hospitalization)
  Sender: FDA-Public Use
  Company Number: 2005015249

PATIENT
  Age: 11 Year
  Sex: Female
  Weight: 29 kg

DRUGS (6)
  1. GENOTROPIN [Suspect]
     Indication: HYPOPITUITARISM
     Dosage: (1 MG, 5 TIMES WEEKLY), SUBCUTANEOUS
     Route: 058
     Dates: start: 20040702
  2. VALPROATE SODIUM [Suspect]
     Indication: EPILEPSY
     Dosage: 500 MG (250 MG, TWICE A DAY), ORAL
     Route: 048
     Dates: start: 20000619
  3. CARBAMAZEPINE [Suspect]
     Indication: EPILEPSY
     Dosage: 250 MG 9125 MG, TWICE A DAY), ORAL
     Route: 048
     Dates: start: 20010130
  4. LDUPRORELIN ACETATE (LEUPRORELIN ACETATE) [Concomitant]
  5. LEVOTHYROXINE SODIUM [Concomitant]
  6. ZONISAMIDE (ZONISAMIDE) [Concomitant]

REACTIONS (3)
  - LENTIGO [None]
  - MALIGNANT MELANOMA [None]
  - NAEVUS CELL NAEVUS [None]
